FAERS Safety Report 4363607-6 (Version None)
Quarter: 2004Q2

REPORT INFORMATION
  Report Type: 
  Country: None (occurrence: None)
  Receive Date: 20040518
  Receipt Date: 20040315
  Transmission Date: 20050107
  Serious: Yes (Hospitalization)
  Sender: FDA-Public Use
  Company Number: 200410140BFR

PATIENT
  Age: 17 Year
  Sex: Male
  Weight: 80 kg

DRUGS (13)
  1. CIPROFLOXACIN [Suspect]
     Indication: ENCEPHALITIS
     Dosage: 1 G, TOTAL DAILY, OTAL
     Route: 048
     Dates: start: 20040214, end: 20040216
  2. AMIKACIN [Suspect]
     Indication: ENCEPHALITIS
     Dosage: 1.2 G, TOTAL DAILY
     Dates: start: 20040206, end: 20040217
  3. FRAXIPARINE (HEPARIN-FRACTION, CALCIUM SALT) [Suspect]
     Dosage: SUBCUTANEOUS
     Route: 058
     Dates: start: 20040211
  4. CEFTAZIDIME PENTAHYDRATE [Suspect]
     Indication: ENCEPHALITIS
     Dates: start: 20040213
  5. OMEPRAZOLE [Suspect]
     Dates: start: 20040206
  6. ACETAMINOPHEN [Suspect]
     Dates: start: 20040208
  7. ZOVIRAX [Concomitant]
  8. ROCEPHIN [Concomitant]
  9. DIPRIVAN [Concomitant]
  10. HYPNOVEL [Concomitant]
  11. SUFENTA [Concomitant]
  12. TEGELINE [Concomitant]
  13. JOSACINE [Concomitant]

REACTIONS (1)
  - CYTOLYTIC HEPATITIS [None]
